FAERS Safety Report 18427979 (Version 1)
Quarter: 2020Q4

REPORT INFORMATION
  Report Type: Spontaneous
  Country: US (occurrence: US)
  Receive Date: 20201026
  Receipt Date: 20201026
  Transmission Date: 20210114
  Serious: No
  Sender: FDA-Public Use
  Company Number: US-ABBVIE-20K-163-3554588-00

PATIENT
  Age: 44 Year
  Sex: Female
  Weight: 56.75 kg

DRUGS (2)
  1. LUPRON DEPOT [Suspect]
     Active Substance: LEUPROLIDE ACETATE
     Indication: ENDOMETRIOSIS
     Route: 030
     Dates: start: 200607, end: 200809
  2. HYDROCODONE/ACETAMINOPHEN [Suspect]
     Active Substance: ACETAMINOPHEN\HYDROCODONE
     Indication: ARTHRALGIA
     Dosage: 10/325MG, BREAK IN HALF WHEN TAKEN?PRN?MFG. BY TRIS PHARMA
     Route: 065
     Dates: start: 20200801

REACTIONS (31)
  - Gait disturbance [Recovered/Resolved]
  - Joint dislocation [Recovered/Resolved]
  - Pelvic congestion [Not Recovered/Not Resolved]
  - Tendon disorder [Not Recovered/Not Resolved]
  - Impaired quality of life [Unknown]
  - Osteoarthritis [Not Recovered/Not Resolved]
  - Joint noise [Recovered/Resolved]
  - Intervertebral disc protrusion [Not Recovered/Not Resolved]
  - Arthralgia [Not Recovered/Not Resolved]
  - Insomnia [Not Recovered/Not Resolved]
  - Joint noise [Recovered/Resolved]
  - Renal cyst [Not Recovered/Not Resolved]
  - Spinal stenosis [Not Recovered/Not Resolved]
  - Arthralgia [Not Recovered/Not Resolved]
  - Osteoarthritis [Not Recovered/Not Resolved]
  - Gait disturbance [Recovered/Resolved]
  - Swelling [Unknown]
  - Mass [Unknown]
  - Stress [Not Recovered/Not Resolved]
  - Spondylolisthesis [Not Recovered/Not Resolved]
  - Intervertebral disc annular tear [Not Recovered/Not Resolved]
  - Back pain [Not Recovered/Not Resolved]
  - Nausea [Unknown]
  - Osteoporosis [Unknown]
  - Bone pain [Not Recovered/Not Resolved]
  - Spinal retrolisthesis [Unknown]
  - Intervertebral disc space narrowing [Not Recovered/Not Resolved]
  - Facet joint syndrome [Not Recovered/Not Resolved]
  - Sinusitis [Unknown]
  - Back pain [Unknown]
  - Vertigo [Unknown]

NARRATIVE: CASE EVENT DATE: 2010
